APPROVED DRUG PRODUCT: ARYMO ER
Active Ingredient: MORPHINE SULFATE
Strength: 15MG
Dosage Form/Route: TABLET, EXTENDED RELEASE;ORAL
Application: N208603 | Product #001
Applicant: ZYLA LIFE SCIENCES US INC
Approved: Jan 9, 2017 | RLD: Yes | RS: No | Type: DISCN

PATENTS:
Patent 9549899 | Expires: Jul 1, 2033
Patent 9044402 | Expires: Jul 1, 2033